FAERS Safety Report 5418536-3 (Version None)
Quarter: 2007Q3

REPORT INFORMATION
  Report Type: 
  Country: None (occurrence: None)
  Receive Date: 20070817
  Receipt Date: 20070809
  Transmission Date: 20080115
  Serious: Yes (Other)
  Sender: FDA-Public Use
  Company Number: US-GENENTECH-245967

PATIENT
  Age: 89 Year
  Sex: Female

DRUGS (1)
  1. AVASTIN [Suspect]

REACTIONS (1)
  - HYPERTENSION [None]
